FAERS Safety Report 10017474 (Version 1)
Quarter: 2014Q1

REPORT INFORMATION
  Report Type: Spontaneous
  Country: US (occurrence: US)
  Receive Date: 20140318
  Receipt Date: 20140318
  Transmission Date: 20141002
  Serious: No
  Sender: FDA-Public Use
  Company Number: US-009507513-1403USA007984

PATIENT
  Age: 56 Year
  Sex: Male

DRUGS (4)
  1. PRINIVIL [Suspect]
     Dosage: 1 TABLET ONCE DAILY
     Dates: start: 2013
  2. WELLBUTRIN [Suspect]
     Dosage: UNK
  3. OXCARBAZEPINE [Concomitant]
     Dosage: UNK
  4. BUSPIRONE HYDROCHLORIDE [Concomitant]
     Dosage: UNK

REACTIONS (1)
  - Erectile dysfunction [Not Recovered/Not Resolved]
